FAERS Safety Report 7559257-0 (Version None)
Quarter: 2011Q2

REPORT INFORMATION
  Report Type: 
  Country: None (occurrence: None)
  Receive Date: 20110621
  Receipt Date: 20110617
  Transmission Date: 20111010
  Serious: Yes (Life-Threatening, Hospitalization, Other)
  Sender: FDA-Public Use
  Company Number: US-ASTRAZENECA-2011SE36918

PATIENT
  Age: 34 Year
  Sex: Female
  Weight: 77.1 kg

DRUGS (5)
  1. SEROQUEL XR [Suspect]
     Route: 048
  2. SEROQUEL XR [Suspect]
     Indication: BIPOLAR DISORDER
     Route: 048
     Dates: end: 20101001
  3. SEROQUEL XR [Suspect]
     Route: 048
     Dates: start: 20101201, end: 20110401
  4. ADDEROL [Concomitant]
  5. ZOLOFT [Concomitant]

REACTIONS (16)
  - INCREASED APPETITE [None]
  - EATING DISORDER [None]
  - BLOOD GLUCOSE INCREASED [None]
  - DIZZINESS [None]
  - DRUG DOSE OMISSION [None]
  - HALLUCINATION, AUDITORY [None]
  - AMNESIA [None]
  - BLOOD CHOLESTEROL INCREASED [None]
  - COMA [None]
  - WEIGHT INCREASED [None]
  - HOSPITALISATION [None]
  - OVERDOSE [None]
  - PARANOIA [None]
  - SUICIDE ATTEMPT [None]
  - THERAPEUTIC RESPONSE UNEXPECTED [None]
  - FATIGUE [None]
